FAERS Safety Report 17610139 (Version 1)
Quarter: 2020Q1

REPORT INFORMATION
  Report Type: Spontaneous
  Country: US (occurrence: US)
  Receive Date: 20200330
  Receipt Date: 20200330
  Transmission Date: 20200409
  Serious: No
  Sender: FDA-Public Use
  Company Number: None

PATIENT
  Age: 86 Year
  Sex: Male

DRUGS (1)
  1. IRINOTECAN INJ 20MG/ML [Suspect]
     Active Substance: IRINOTECAN
     Indication: COLON CANCER
     Route: 042

REACTIONS (3)
  - Therapy cessation [None]
  - Fall [None]
  - Pneumonia [None]

NARRATIVE: CASE EVENT DATE: 20200330
